FAERS Safety Report 6100032-1 (Version None)
Quarter: 2009Q1

REPORT INFORMATION
  Report Type: 
  Country: None (occurrence: None)
  Receive Date: 20090303
  Receipt Date: 20090226
  Transmission Date: 20090719
  Serious: Yes (Life-Threatening)
  Sender: FDA-Public Use
  Company Number: B0558898A

PATIENT
  Age: 10 Year
  Sex: Male

DRUGS (4)
  1. RELENZA [Suspect]
     Indication: INFLUENZA
     Dosage: 10MG TWICE PER DAY
     Route: 055
     Dates: start: 20090204, end: 20090208
  2. ELIZYME [Concomitant]
     Indication: DRUG USE FOR UNKNOWN INDICATION
     Dosage: 1ML THREE TIMES PER DAY
     Route: 048
     Dates: start: 20090204, end: 20090208
  3. PRIMPERAN [Concomitant]
     Indication: NAUSEA
     Dosage: 5ML THREE TIMES PER DAY
     Route: 048
     Dates: start: 20090204, end: 20090208
  4. CALONAL [Concomitant]
     Indication: DRUG USE FOR UNKNOWN INDICATION
     Route: 048

REACTIONS (7)
  - ABNORMAL BEHAVIOUR [None]
  - AMNESIA [None]
  - HALLUCINATION, AUDITORY [None]
  - HALLUCINATION, VISUAL [None]
  - NERVOUS SYSTEM DISORDER [None]
  - SCREAMING [None]
  - SOMNAMBULISM [None]
